FAERS Safety Report 11071164 (Version 2)
Quarter: 2015Q2

REPORT INFORMATION
  Report Type: Spontaneous
  Country: US (occurrence: US)
  Receive Date: 20150428
  Receipt Date: 20150612
  Transmission Date: 20150821
  Serious: Yes (Other)
  Sender: FDA-Public Use
  Company Number: US-JNJFOC-20150421254

PATIENT
  Age: 53 Year
  Sex: Female

DRUGS (15)
  1. REMICADE [Suspect]
     Active Substance: INFLIXIMAB
     Indication: CROHN^S DISEASE
     Dosage: 2, 6 Q 8 WEEKS
     Route: 042
     Dates: start: 20141217
  2. REMICADE [Suspect]
     Active Substance: INFLIXIMAB
     Indication: VAGINAL FISTULA
     Dosage: 2, 6 Q 8 WEEKS
     Route: 042
     Dates: start: 20141217
  3. REMICADE [Suspect]
     Active Substance: INFLIXIMAB
     Indication: CROHN^S DISEASE
     Dosage: LAST DOSE
     Route: 042
     Dates: end: 20150327
  4. FLORASTOR [Concomitant]
     Active Substance: SACCHAROMYCES CEREVISIAE
     Indication: NUTRITIONAL SUPPLEMENTATION
     Route: 065
  5. METRONIDAZOLE. [Concomitant]
     Active Substance: METRONIDAZOLE
     Indication: CROHN^S DISEASE
     Route: 065
     Dates: start: 20150114
  6. REMICADE [Suspect]
     Active Substance: INFLIXIMAB
     Indication: CROHN^S DISEASE
     Dosage: LAST DOSE
     Route: 042
     Dates: end: 20150327
  7. NITROFURANTOIN. [Concomitant]
     Active Substance: NITROFURANTOIN
     Indication: INFECTION PROPHYLAXIS
     Route: 065
     Dates: start: 20150125
  8. BALSALAZIDE [Concomitant]
     Active Substance: BALSALAZIDE
     Indication: CROHN^S DISEASE
     Route: 065
     Dates: start: 20141223
  9. CANASA [Concomitant]
     Active Substance: MESALAMINE
     Indication: VAGINAL FISTULA
     Route: 065
     Dates: start: 20150115
  10. CANASA [Concomitant]
     Active Substance: MESALAMINE
     Indication: CROHN^S DISEASE
     Route: 065
     Dates: start: 20150115
  11. ZOFRAN [Concomitant]
     Active Substance: ONDANSETRON HYDROCHLORIDE
     Indication: NAUSEA
     Route: 065
  12. AZATHIOPRINE. [Concomitant]
     Active Substance: AZATHIOPRINE
     Indication: CROHN^S DISEASE
     Dosage: 25-50G
     Route: 065
     Dates: start: 20150126
  13. REMICADE [Suspect]
     Active Substance: INFLIXIMAB
     Indication: VAGINAL FISTULA
     Dosage: LAST DOSE
     Route: 042
     Dates: end: 20150327
  14. REMICADE [Suspect]
     Active Substance: INFLIXIMAB
     Indication: CROHN^S DISEASE
     Dosage: 2, 6 Q 8 WEEKS
     Route: 042
     Dates: start: 20141217
  15. WELLBUTRIN [Concomitant]
     Active Substance: BUPROPION HYDROCHLORIDE
     Indication: DEPRESSION
     Dosage: STARTED BEFORE 16-APR-2015
     Route: 065

REACTIONS (2)
  - Cardiomyopathy [Recovered/Resolved with Sequelae]
  - Cardiac failure [Recovered/Resolved with Sequelae]

NARRATIVE: CASE EVENT DATE: 20150413
